FAERS Safety Report 10186098 (Version 1)
Quarter: 2014Q2

REPORT INFORMATION
  Report Type: Spontaneous
  Country: US (occurrence: US)
  Receive Date: 20140521
  Receipt Date: 20140521
  Transmission Date: 20141212
  Serious: Yes (Other)
  Sender: FDA-Public Use
  Company Number: CHPA2014US006603

PATIENT
  Age: 75 Year
  Sex: Male

DRUGS (2)
  1. EXCEDRIN UNKNOWN [Suspect]
     Dosage: UNK
     Route: 048
     Dates: end: 2012
  2. WARFARIN [Concomitant]

REACTIONS (1)
  - Transient ischaemic attack [Unknown]
